FAERS Safety Report 5723492-4 (Version None)
Quarter: 2008Q2

REPORT INFORMATION
  Report Type: 
  Country: None (occurrence: None)
  Receive Date: 20080425
  Receipt Date: 20070802
  Transmission Date: 20081010
  Serious: Yes (Hospitalization)
  Sender: FDA-Public Use
  Company Number: M7002-00007-SPO-US

PATIENT
  Age: 55 Year
  Sex: Male

DRUGS (7)
  1. ONTAK [Suspect]
     Indication: MYCOSIS FUNGOIDES
     Dosage: 18 MCG, 1 IN 21 D, INTRAVENOUS
     Route: 042
  2. ONTAK [Suspect]
     Indication: PERIPHERAL T-CELL LYMPHOMA UNSPECIFIED
     Dosage: 18 MCG, 1 IN 21 D, INTRAVENOUS
     Route: 042
  3. VINCRISTINE SULFATE [Concomitant]
  4. DOXORUBICIN HCL [Concomitant]
  5. PREDNISONE TAB [Concomitant]
  6. CYTOXAN [Concomitant]
  7. NEULASTA [Concomitant]

REACTIONS (4)
  - ANGIOPATHY [None]
  - CHILLS [None]
  - DYSPNOEA [None]
  - PYREXIA [None]
